FAERS Safety Report 9507605 (Version 1)
Quarter: 2013Q3

REPORT INFORMATION
  Report Type: Spontaneous
  Country: US (occurrence: US)
  Receive Date: 20130909
  Receipt Date: 20130909
  Transmission Date: 20140515
  Serious: Yes (Other)
  Sender: FDA-Public Use
  Company Number: US-ELI_LILLY_AND_COMPANY-US201308010075

PATIENT
  Age: 31 Year
  Sex: Male

DRUGS (7)
  1. ZYPREXA [Suspect]
     Indication: SCHIZOPHRENIA
     Dosage: 15 MG, BID
  2. ZYPREXA [Interacting]
     Dosage: 20 MG, QD
  3. KLONOPIN [Interacting]
     Dosage: 0.5 MG, BID
  4. LITHIUM CITRATE [Interacting]
     Dosage: 250 MG, BID
  5. PROPANOLOL [Concomitant]
     Dosage: 10 MG, BID
  6. PROPANOLOL [Concomitant]
     Dosage: 5 MG, BID
  7. ATIVAN [Concomitant]
     Indication: ANXIETY

REACTIONS (8)
  - Myocardial infarction [Unknown]
  - Heart rate increased [Unknown]
  - Restlessness [Unknown]
  - Central obesity [Unknown]
  - Dysarthria [Unknown]
  - Fatigue [Unknown]
  - Drug interaction [Unknown]
  - Prescribed overdose [Recovered/Resolved]
